FAERS Safety Report 6837879-X (Version None)
Quarter: 2010Q3

REPORT INFORMATION
  Report Type: 
  Country: None (occurrence: None)
  Receive Date: 20100713
  Receipt Date: 20070524
  Transmission Date: 20110219
  Serious: Yes (Other)
  Sender: FDA-Public Use
  Company Number: US-PFIZER INC-2007042834

PATIENT
  Age: 37 Year
  Sex: Female

DRUGS (4)
  1. CHANTIX [Suspect]
     Indication: SMOKING CESSATION THERAPY
     Dates: start: 20070524
  2. TARKA [Concomitant]
     Indication: HYPERTENSION
  3. WELLBUTRIN [Concomitant]
  4. AMBIEN [Concomitant]
     Indication: POOR QUALITY SLEEP

REACTIONS (3)
  - ABDOMINAL PAIN UPPER [None]
  - NAUSEA [None]
  - VOMITING [None]
